FAERS Safety Report 7244501-X (Version None)
Quarter: 2011Q1

REPORT INFORMATION
  Report Type: 
  Country: None (occurrence: None)
  Receive Date: 20110125
  Receipt Date: 20110117
  Transmission Date: 20110831
  Serious: No
  Sender: FDA-Public Use
  Company Number: PHHO2010JP18932

PATIENT
  Sex: Male

DRUGS (1)
  1. CERTICAN [Suspect]
     Indication: RENAL TRANSPLANT
     Route: 065

REACTIONS (1)
  - DRUG EXPOSURE DURING PREGNANCY [None]
